FAERS Safety Report 19285992 (Version 1)
Quarter: 2021Q2

REPORT INFORMATION
  Report Type: Spontaneous
  Country: US (occurrence: US)
  Receive Date: 20210521
  Receipt Date: 20210521
  Transmission Date: 20210717
  Serious: Yes (Other)
  Sender: FDA-Public Use
  Company Number: US-FRESENIUS KABI-FK202105121

PATIENT
  Age: 14 Year
  Sex: Female

DRUGS (4)
  1. STEROIDS [Suspect]
     Active Substance: UNSPECIFIED INGREDIENT
     Indication: NERVOUS SYSTEM DISORDER
     Route: 065
  2. VINBLASTINE (MANUFACTURER UNKNOWN) [Suspect]
     Active Substance: VINBLASTINE
     Indication: LANGERHANS^ CELL HISTIOCYTOSIS
  3. STEROIDS [Suspect]
     Active Substance: UNSPECIFIED INGREDIENT
     Indication: LANGERHANS^ CELL HISTIOCYTOSIS
  4. VINBLASTINE (MANUFACTURER UNKNOWN) [Suspect]
     Active Substance: VINBLASTINE
     Indication: NERVOUS SYSTEM DISORDER
     Route: 065

REACTIONS (1)
  - Endocrine disorder [Recovered/Resolved]
